FAERS Safety Report 9887360 (Version 2)
Quarter: 2014Q1

REPORT INFORMATION
  Report Type: Other
  Country: JP (occurrence: JP)
  Receive Date: 20140211
  Receipt Date: 20140324
  Transmission Date: 20141002
  Serious: Yes (Hospitalization, Other)
  Sender: FDA-Public Use
  Company Number: JP-BRISTOL-MYERS SQUIBB COMPANY-20161394

PATIENT
  Age: 36 Year
  Sex: Male

DRUGS (7)
  1. METGLUCO [Suspect]
     Indication: DIABETES MELLITUS
     Dosage: UNK:1500MG (3 IN 1 D)
     Route: 048
     Dates: start: 20121107, end: 20130507
  2. SEDIEL [Concomitant]
     Indication: DEPRESSION
     Route: 048
  3. LUVOX [Concomitant]
     Indication: DEPRESSION
     Route: 048
  4. ROHYPNOL [Concomitant]
     Indication: INSOMNIA
     Route: 048
  5. LYRICA [Concomitant]
     Indication: NEURALGIA
     Route: 048
  6. JANUVIA [Concomitant]
     Indication: DIABETES MELLITUS
     Route: 048
     Dates: start: 20120801, end: 20130507
  7. ACTOS [Concomitant]
     Indication: DIABETES MELLITUS
     Route: 048
     Dates: start: 20121205

REACTIONS (2)
  - Hyperglycaemic hyperosmolar nonketotic syndrome [Unknown]
  - Hyperlactacidaemia [Unknown]
